FAERS Safety Report 12270912 (Version 3)
Quarter: 2016Q3

REPORT INFORMATION
  Report Type: Spontaneous
  Country: US (occurrence: US)
  Receive Date: 20160415
  Receipt Date: 20160713
  Transmission Date: 20161109
  Serious: Yes (Hospitalization, Other)
  Sender: FDA-Public Use
  Company Number: US-PFIZER INC-2016210890

PATIENT
  Age: 58 Year
  Sex: Female

DRUGS (35)
  1. HYZAAR [Concomitant]
     Active Substance: HYDROCHLOROTHIAZIDE\LOSARTAN POTASSIUM
     Indication: BLOOD PRESSURE MEASUREMENT
     Dosage: 125 MG, 1X/DAY (LOSARTAN 100 MG/HYDROCHLOROTHIAZIDE 25 MG)
     Route: 048
     Dates: start: 2005
  2. FLONASE [Concomitant]
     Active Substance: FLUTICASONE PROPIONATE
     Dosage: PLACE 1 SPRAY INTO THE NOSTRIL(S) ONCE DAILY
     Route: 045
  3. FLEXERIL [Concomitant]
     Active Substance: CYCLOBENZAPRINE HYDROCHLORIDE
     Indication: MUSCLE SPASMS
     Dosage: 10 MG, TAKE ONE TABLET BY MOUTH THREE TIMES DAILY AS NEEDED
     Route: 048
     Dates: start: 2007
  4. PROVENTIL HFA [Concomitant]
     Active Substance: ALBUTEROL SULFATE
     Dosage: 4X/DAY (90 MCG; INHALE 2 PUFFS INTO THE LUNGS 4 (FOUR) TIMES DAILY)
  5. CATAPRES [Concomitant]
     Active Substance: CLONIDINE HYDROCHLORIDE
     Indication: BLOOD PRESSURE ABNORMAL
     Dosage: 0.2 MG, 2X/DAY (1 TAB BY MOUTH 2 (TWO) TIMES DAILY)
     Route: 048
  6. NORCO [Concomitant]
     Active Substance: ACETAMINOPHEN\HYDROCODONE BITARTRATE
     Dosage: 1 DF, 2X/DAY  (HYDROCODONE BITARTRATE: 7.5 MG, PARACETAMOL: 325 MG))
     Route: 048
  7. VITAMIN D [Concomitant]
     Active Substance: CHOLECALCIFEROL
     Dosage: 1000 IU, 1X/DAY
     Route: 048
  8. MYCOSTATIN [Concomitant]
     Active Substance: NYSTATIN
     Indication: CANDIDA INFECTION
     Dosage: 5 ML, 100,000 UNIT/ML, 4X/DAY
     Route: 048
  9. HYDROCODONE [Concomitant]
     Active Substance: HYDROCODONE
     Dosage: NOW ITS 7 1/2 2006 + NOW TWO TIMES A DAY
     Dates: start: 2006
  10. FLEXERIL [Concomitant]
     Active Substance: CYCLOBENZAPRINE HYDROCHLORIDE
     Indication: PAIN
  11. ASPIRIN. [Concomitant]
     Active Substance: ASPIRIN
     Indication: DIABETES MELLITUS
     Dosage: 325 MG, 1X/DAY
     Route: 048
  12. BACITRACIN. [Concomitant]
     Active Substance: BACITRACIN
     Indication: SKIN INFECTION
     Dosage: 2X/DAY (500 UNIT/GRAM)
     Route: 061
  13. KLOR-CON M10 [Concomitant]
     Active Substance: POTASSIUM CHLORIDE
     Indication: BLOOD POTASSIUM
     Dosage: 10 MEQ, 1X/DAY
     Route: 048
  14. K TAB 10 [Concomitant]
     Indication: BLOOD POTASSIUM
     Dosage: 10 MEQ, 1X/DAY
     Route: 048
  15. LYRICA [Suspect]
     Active Substance: PREGABALIN
     Indication: FIBROMYALGIA
     Dosage: UNK, 3X/DAY
     Route: 048
     Dates: start: 2007
  16. LYRICA [Suspect]
     Active Substance: PREGABALIN
     Indication: DIABETIC NEUROPATHY
     Dosage: 150 MG, 2X/DAY
     Route: 048
  17. LYRICA [Suspect]
     Active Substance: PREGABALIN
     Indication: MYOPATHY
  18. BACLOFEN. [Concomitant]
     Active Substance: BACLOFEN
     Indication: PAIN
     Dosage: 20 MG, TAKE 1 TAB BY MOUTH 2 TO 3 (TWO TO THREE) TIMES DAILY AS NEEDED
     Route: 048
  19. BACLOFEN. [Concomitant]
     Active Substance: BACLOFEN
     Indication: MUSCLE SPASMS
  20. NOVOLOG [Concomitant]
     Active Substance: INSULIN ASPART
     Dosage: 3X/DAY (PT HAS SLIDING SCALE, AVERAGE AROUND 200 MG/DL (8-10 UNITS), TESTS 3 TIMES DAILY)
  21. CORTISPORIN [Concomitant]
     Active Substance: BACITRACIN ZINC\HYDROCORTISONE\NEOMYCIN SULFATE\POLYMYXIN B SULFATE
     Indication: PSORIASIS
     Dosage: PLACE 4 DROPS INTO BOTH EARS 4 (FOUR) TIMES DAILY
  22. INSULIN [Concomitant]
     Active Substance: INSULIN NOS
     Dosage: 60 IU, MORNING
  23. MIRALAX [Concomitant]
     Active Substance: POLYETHYLENE GLYCOL 3350
     Indication: CONSTIPATION
     Dosage: 17 G, 1X/DAY (DISSOLVE IN A GLASS (8 OZ ) OF WATER
     Route: 048
  24. CLONIDINE. [Concomitant]
     Active Substance: CLONIDINE
     Indication: BLOOD PRESSURE MEASUREMENT
     Dosage: 2 DF, DAILY
     Route: 048
     Dates: start: 2016
  25. VALIUM [Concomitant]
     Active Substance: DIAZEPAM
     Indication: ANXIETY
     Dosage: 0.25 MG NIGHTLY AT BEDTIME AS NEEDED
     Route: 048
  26. LASIX [Concomitant]
     Active Substance: FUROSEMIDE
     Dosage: 40 MG, 2X/DAY
     Route: 048
  27. NORCO [Concomitant]
     Active Substance: ACETAMINOPHEN\HYDROCODONE BITARTRATE
     Indication: PAIN
     Dosage: 1 DF, AS NEEDED (HYDROCODONE BITARTRATE: 7.5 MG, PARACETAMOL: 325 MG; 2 TIMES DAILY AS NEEDED )
  28. OMEGA-3 FATTY ACIDS [Concomitant]
     Active Substance: OMEGA-3 FATTY ACIDS
     Indication: BLOOD CHOLESTEROL INCREASED
     Dosage: 1000 MG, 3X/DAY
     Route: 048
  29. LANTUS [Concomitant]
     Active Substance: INSULIN GLARGINE
     Dosage: INCREASE EVENING TO 65 IU
  30. SYNTHROID [Concomitant]
     Active Substance: LEVOTHYROXINE SODIUM
     Dosage: 75 UG, 1X/DAY
     Route: 048
  31. GLYCOLAX [Concomitant]
     Active Substance: POLYETHYLENE GLYCOL 3350
     Indication: CONSTIPATION
     Dosage: 17 G, 1X/DAY (DISSOLVE IN A GLASS (8 OZ ) OF WATER
     Route: 048
  32. HYDROCODONE [Concomitant]
     Active Substance: HYDROCODONE
     Indication: PAIN
     Dosage: 500 MG, 3X/DAY
  33. SYMBICORT [Concomitant]
     Active Substance: BUDESONIDE\FORMOTEROL FUMARATE DIHYDRATE
     Dosage: INHALE 2 PUFFS INTO THE LUNGS 2 (TWO) TIMES DAILY (BUDESONIDE: 160MCG, FORMOTEROL FUMARATE: 4.5MCG)
  34. LEVOTHROID [Concomitant]
     Active Substance: LEVOTHYROXINE SODIUM
     Dosage: 75 UG, 1X/DAY (TAKE ONE TABLET BY MOUTH ONE TIME DAILY)
     Route: 048
  35. OMEGA-3 FATTY ACIDS [Concomitant]
     Active Substance: OMEGA-3 FATTY ACIDS
     Indication: BLOOD TRIGLYCERIDES

REACTIONS (3)
  - Gait disturbance [Unknown]
  - Vision blurred [Unknown]
  - Pneumonia [Not Recovered/Not Resolved]

NARRATIVE: CASE EVENT DATE: 2015
